APPROVED DRUG PRODUCT: PRAMIPEXOLE DIHYDROCHLORIDE
Active Ingredient: PRAMIPEXOLE DIHYDROCHLORIDE
Strength: 1MG
Dosage Form/Route: TABLET;ORAL
Application: A090241 | Product #005
Applicant: CHARTWELL RX SCIENCES LLC
Approved: Oct 8, 2010 | RLD: No | RS: No | Type: DISCN